FAERS Safety Report 10966522 (Version 2)
Quarter: 2015Q2

REPORT INFORMATION
  Report Type: Spontaneous
  Country: NL (occurrence: NL)
  Receive Date: 20150330
  Receipt Date: 20150415
  Transmission Date: 20150821
  Serious: Yes (Hospitalization)
  Sender: FDA-Public Use
  Company Number: NL-SA-2015SA038142

PATIENT
  Age: 54 Year
  Sex: Female

DRUGS (8)
  1. AUBAGIO [Suspect]
     Active Substance: TERIFLUNOMIDE
     Indication: RELAPSING-REMITTING MULTIPLE SCLEROSIS
     Dosage: DOSE- 1 PIECE(S)
     Route: 048
     Dates: start: 20141202
  2. DIVISUN [Concomitant]
     Dosage: 80 IE STRENGTH DOSE:800 UNIT(S)
     Route: 048
     Dates: start: 20140930
  3. AMITRIPTYLINE [Concomitant]
     Active Substance: AMITRIPTYLINE
     Dosage: 10MG STRENGTH
     Route: 048
     Dates: start: 20140930
  4. HYDROCHLOROTHIAZIDE. [Concomitant]
     Active Substance: HYDROCHLOROTHIAZIDE
     Dosage: 12.5STRENGTH
     Route: 048
  5. OMEPRAZOLE. [Concomitant]
     Active Substance: OMEPRAZOLE
     Dosage: 20MG STRENGTH
     Route: 048
     Dates: start: 20140930
  6. SIMVASTATIN. [Concomitant]
     Active Substance: SIMVASTATIN
     Dosage: 40MG STRENGTH
     Route: 048
     Dates: start: 20140930
  7. ENALAPRIL [Concomitant]
     Active Substance: ENALAPRIL
     Dosage: 5MG STRENGTH
     Route: 048
     Dates: start: 20140930
  8. ACETYLSALICYLZUUR [Concomitant]
     Dosage: 80MG STRENGTH
     Route: 048
     Dates: start: 20140930

REACTIONS (1)
  - Myocardial infarction [Recovering/Resolving]

NARRATIVE: CASE EVENT DATE: 201503
